FAERS Safety Report 13966828 (Version 1)
Quarter: 2017Q3

REPORT INFORMATION
  Report Type: Spontaneous
  Country: US (occurrence: US)
  Receive Date: 20170914
  Receipt Date: 20170914
  Transmission Date: 20171128
  Serious: Yes (Life-Threatening, Hospitalization, Disabling, Other)
  Sender: FDA-Public Use
  Company Number: None

PATIENT
  Age: 42 Year
  Sex: Female
  Weight: 72 kg

DRUGS (10)
  1. TOPAMAX [Concomitant]
     Active Substance: TOPIRAMATE
  2. ARMOUR THYROID [Concomitant]
     Active Substance: THYROID, PORCINE
  3. METFORMIN [Concomitant]
     Active Substance: METFORMIN HYDROCHLORIDE
  4. XANAX [Suspect]
     Active Substance: ALPRAZOLAM
     Indication: POST-TRAUMATIC STRESS DISORDER
     Dosage: ?          QUANTITY:90 TABLET(S);?AT BEDTIME ORAL
     Route: 048
  5. HYZAAR [Concomitant]
     Active Substance: HYDROCHLOROTHIAZIDE\LOSARTAN POTASSIUM
  6. XANAX [Suspect]
     Active Substance: ALPRAZOLAM
     Indication: OBSESSIVE-COMPULSIVE DISORDER
     Dosage: ?          QUANTITY:90 TABLET(S);?AT BEDTIME ORAL
     Route: 048
  7. XANAX [Suspect]
     Active Substance: ALPRAZOLAM
     Indication: SOCIAL ANXIETY DISORDER
     Dosage: ?          QUANTITY:90 TABLET(S);?AT BEDTIME ORAL
     Route: 048
  8. BENADRYL [Concomitant]
     Active Substance: DIPHENHYDRAMINE HYDROCHLORIDE
  9. OTC STLEEPING MEDS [Concomitant]
  10. XANAX [Suspect]
     Active Substance: ALPRAZOLAM
     Indication: INSOMNIA
     Dosage: ?          QUANTITY:90 TABLET(S);?AT BEDTIME ORAL
     Route: 048

REACTIONS (18)
  - Dyskinesia [None]
  - Hypothyroidism [None]
  - Memory impairment [None]
  - Insomnia [None]
  - Bone pain [None]
  - Thyroid disorder [None]
  - Decreased appetite [None]
  - Vitamin D deficiency [None]
  - Blood potassium decreased [None]
  - Arthritis [None]
  - Pain [None]
  - Agoraphobia [None]
  - Weight decreased [None]
  - Suicide attempt [None]
  - Withdrawal syndrome [None]
  - Nausea [None]
  - Paranoia [None]
  - Fibromyalgia [None]

NARRATIVE: CASE EVENT DATE: 20170906
